FAERS Safety Report 9983388 (Version 1)
Quarter: 2014Q1

REPORT INFORMATION
  Report Type: Spontaneous
  Country: IL (occurrence: IL)
  Receive Date: 20140307
  Receipt Date: 20140307
  Transmission Date: 20141002
  Serious: Yes (Hospitalization)
  Sender: FDA-Public Use
  Company Number: IL-SHIRE-IL201400276

PATIENT
  Sex: 0

DRUGS (1)
  1. VPRIV [Suspect]
     Indication: PRODUCT USED FOR UNKNOWN INDICATION
     Dosage: 2000 IU, PER MONTH
     Route: 041
     Dates: start: 2004

REACTIONS (5)
  - Chest discomfort [Unknown]
  - Urinary tract infection [Unknown]
  - Pruritus [Unknown]
  - Swelling [Unknown]
  - Drug hypersensitivity [Unknown]
